FAERS Safety Report 15329138 (Version 2)
Quarter: 2018Q4

REPORT INFORMATION
  Report Type: Spontaneous
  Country: FR (occurrence: FR)
  Receive Date: 20180829
  Receipt Date: 20181008
  Transmission Date: 20190204
  Serious: Yes (Other)
  Sender: FDA-Public Use
  Company Number: FR-SUN PHARMACEUTICAL INDUSTRIES LTD-2018R1-181679

PATIENT
  Age: 47 Year
  Sex: Male

DRUGS (3)
  1. OXAZEPAM. [Suspect]
     Active Substance: OXAZEPAM
     Indication: WITHDRAWAL SYNDROME
     Dosage: 30 MG, DAILY
     Route: 065
     Dates: start: 20180428, end: 20180502
  2. TRAMADOL. [Suspect]
     Active Substance: TRAMADOL
     Indication: ARTHRALGIA
     Dosage: 300 MG, DAILY
     Route: 048
     Dates: start: 201801, end: 20180428
  3. ZOPICLONE [Suspect]
     Active Substance: ZOPICLONE
     Indication: WITHDRAWAL SYNDROME
     Dosage: 1 DF, DAILY
     Route: 048
     Dates: start: 20180428, end: 20180502

REACTIONS (2)
  - Intentional product misuse [Recovered/Resolved]
  - Drug withdrawal syndrome [Recovering/Resolving]

NARRATIVE: CASE EVENT DATE: 20180428
